FAERS Safety Report 8774785 (Version 3)
Quarter: 2012Q4

REPORT INFORMATION
  Report Type: 
  Country: FR (occurrence: FR)
  Receive Date: 20120907
  Receipt Date: 20121210
  Transmission Date: 20130627
  Serious: Yes (Other)
  Sender: FDA-Public Use
  Company Number: FR-PFIZER INC-2012218683

PATIENT
  Age: 45 Year
  Sex: Male

DRUGS (2)
  1. LYRICA [Suspect]
     Indication: NEURODEGENERATIVE DISORDER
     Dosage: 75 mg in morning and at noon and 150 mg in evening
     Dates: start: 2012
  2. LYRICA [Suspect]
     Dosage: 75 mg in morning and at noon and 225mg in evening

REACTIONS (6)
  - Transaminases increased [Unknown]
  - Ear pain [Unknown]
  - Hearing impaired [Unknown]
  - Headache [Unknown]
  - Visual impairment [Unknown]
  - Gait disturbance [Unknown]
